FAERS Safety Report 12892926 (Version 2)
Quarter: 2016Q4

REPORT INFORMATION
  Report Type: Spontaneous
  Country: US (occurrence: US)
  Receive Date: 20161028
  Receipt Date: 20161209
  Transmission Date: 20170207
  Serious: Yes (Death)
  Sender: FDA-Public Use
  Company Number: US-TEVA-705835USA

PATIENT
  Sex: Female
  Weight: 60 kg

DRUGS (14)
  1. SERTRALINE [Concomitant]
     Active Substance: SERTRALINE HYDROCHLORIDE
  2. PRENATAL VITAMINS [Concomitant]
     Active Substance: VITAMINS
  3. LISINOPRIL. [Concomitant]
     Active Substance: LISINOPRIL
  4. HUMALOG [Concomitant]
     Active Substance: INSULIN LISPRO
  5. GABAPENTIN. [Concomitant]
     Active Substance: GABAPENTIN
  6. SINGULAIR [Concomitant]
     Active Substance: MONTELUKAST SODIUM
  7. CLONAZEPAM. [Concomitant]
     Active Substance: CLONAZEPAM
  8. SYNRIBO [Suspect]
     Active Substance: OMACETAXINE MEPESUCCINATE
     Indication: CHRONIC MYELOID LEUKAEMIA
     Dosage: FORM STRENGTH UNKNOWN
     Route: 065
     Dates: start: 20160920, end: 20160927
  9. CALCIUM ACETATE. [Concomitant]
     Active Substance: CALCIUM ACETATE
  10. REPAGLINIDE. [Concomitant]
     Active Substance: REPAGLINIDE
  11. PROBIOTICA [Concomitant]
     Active Substance: PROBIOTICS NOS
  12. ASPIRIN. [Concomitant]
     Active Substance: ASPIRIN
  13. LEVOTHYROXINE. [Concomitant]
     Active Substance: LEVOTHYROXINE
  14. CLOPIDOGREL [Concomitant]
     Active Substance: CLOPIDOGREL BISULFATE

REACTIONS (1)
  - Death [Fatal]
